FAERS Safety Report 25551119 (Version 1)
Quarter: 2025Q3

REPORT INFORMATION
  Report Type: Spontaneous
  Country: US (occurrence: US)
  Receive Date: 20250714
  Receipt Date: 20250714
  Transmission Date: 20251021
  Serious: No
  Sender: BAYER HEALTHCARE PHARMACEUTICALS INC.
  Company Number: US-BAYER-2025A091795

PATIENT
  Age: 38 Year

DRUGS (1)
  1. GADAVIST [Suspect]
     Active Substance: GADOBUTROL
     Dates: start: 20250711, end: 20250711

REACTIONS (2)
  - Vomiting [None]
  - Urticaria [None]

NARRATIVE: CASE EVENT DATE: 20250711
